FAERS Safety Report 13423527 (Version 1)
Quarter: 2017Q2

REPORT INFORMATION
  Report Type: Spontaneous
  Country: US (occurrence: US)
  Receive Date: 20170410
  Receipt Date: 20170410
  Transmission Date: 20170830
  Serious: No
  Sender: FDA-Public Use
  Company Number: US-PFIZER INC-2017147109

PATIENT
  Age: 47 Year
  Sex: Male
  Weight: 93 kg

DRUGS (7)
  1. ANAPROX DS [Concomitant]
     Active Substance: NAPROXEN SODIUM
     Dosage: 550 MG, 2X/DAY (EVERY TWELVE HOURS)
     Route: 048
  2. CYTOMEL [Concomitant]
     Active Substance: LIOTHYRONINE SODIUM
     Dosage: 15 UG, DAILY
     Route: 048
  3. ULTRAM [Concomitant]
     Active Substance: TRAMADOL HYDROCHLORIDE
     Dosage: 50 MG, 4X/DAY(EVERY SIX HOURS)
     Route: 048
  4. GENOTROPIN MQ [Suspect]
     Active Substance: SOMATROPIN
     Indication: HORMONE THERAPY
     Dosage: 0.4 MG  (5 DAYS EACH WEEK)
     Route: 058
     Dates: start: 2015
  5. SYNTHROID [Concomitant]
     Active Substance: LEVOTHYROXINE SODIUM
     Dosage: 100 UG, DAILY
     Route: 048
  6. WELLBUTRIN SR [Concomitant]
     Active Substance: BUPROPION HYDROCHLORIDE
     Dosage: 100 MG, 4X/DAY
     Route: 048
  7. VIAGRA [Concomitant]
     Active Substance: SILDENAFIL CITRATE
     Dosage: 100 MG, UNK (1/2 TO 1 30-60 MIN PRIOR TO SEXUAL ACTIVITY)
     Route: 048

REACTIONS (2)
  - Haematocrit increased [Unknown]
  - Red blood cell count increased [Unknown]

NARRATIVE: CASE EVENT DATE: 201512
